FAERS Safety Report 8178399-2 (Version None)
Quarter: 2012Q1

REPORT INFORMATION
  Report Type: 
  Country: None (occurrence: None)
  Receive Date: 20120301
  Receipt Date: 20100921
  Transmission Date: 20120608
  Serious: Yes (Other)
  Sender: FDA-Public Use
  Company Number: US-ASTRAZENECA-2010SE43003

PATIENT
  Age: 72 Year
  Sex: Female

DRUGS (1)
  1. NEXIUM [Suspect]
     Route: 048

REACTIONS (5)
  - DYSPNOEA [None]
  - HIATUS HERNIA [None]
  - FALL [None]
  - PAIN [None]
  - DRUG DOSE OMISSION [None]
